FAERS Safety Report 21556226 (Version 1)
Quarter: 2022Q4

REPORT INFORMATION
  Report Type: Spontaneous
  Country: FR (occurrence: FR)
  Receive Date: 20221104
  Receipt Date: 20221104
  Transmission Date: 20230113
  Serious: Yes (Hospitalization)
  Sender: FDA-Public Use
  Company Number: None

PATIENT
  Age: 86 Year
  Sex: Male
  Weight: 52 kg

DRUGS (9)
  1. DALTEPARIN SODIUM [Suspect]
     Active Substance: DALTEPARIN SODIUM
     Indication: Thrombosis prophylaxis
     Dosage: 2500 IU, 1X/DAY, PREVENTIVE DOSE
     Route: 058
     Dates: start: 20220919, end: 20221006
  2. DALTEPARIN SODIUM [Suspect]
     Active Substance: DALTEPARIN SODIUM
     Dosage: 2500 IU, 2X/DAY, CURATIVE DOSE
     Route: 058
     Dates: start: 20221006, end: 20221008
  3. SODIUM CHLORIDE [Suspect]
     Active Substance: SODIUM CHLORIDE
     Indication: Fluid replacement
     Dosage: NACL 20% 2 G IN 500 ML OF G5 BY SUBCUTANEOUS INFUSION FOR 10 HOURS A DAY
     Route: 058
     Dates: start: 20220920, end: 20221007
  4. DEXTROSE\POTASSIUM CHLORIDE\SODIUM CHLORIDE [Suspect]
     Active Substance: DEXTROSE\POTASSIUM CHLORIDE\SODIUM CHLORIDE
     Indication: Fluid replacement
     Dosage: NACL 20% 2 G IN 500 ML OF G5 BY SUBCUTANEOUS INFUSION FOR 10 HOURS A DAY
     Route: 058
     Dates: start: 20220920, end: 20221007
  5. DAFALGAN [Concomitant]
     Active Substance: ACETAMINOPHEN
     Indication: Pain
  6. NEO-MERCAZOLE [Concomitant]
     Active Substance: CARBIMAZOLE
     Indication: Thyroid disorder
     Route: 048
  7. MINERAL OIL [Concomitant]
     Active Substance: MINERAL OIL
     Indication: Constipation
  8. MOVICOL [Concomitant]
     Active Substance: POLYETHYLENE GLYCOL 3350\POTASSIUM CHLORIDE\SODIUM BICARBONATE\SODIUM CHLORIDE
     Indication: Constipation
  9. LEVOTHYROXINE [Concomitant]
     Active Substance: LEVOTHYROXINE
     Indication: Thyroid disorder
     Route: 048

REACTIONS (2)
  - Drug ineffective [Recovered/Resolved]
  - Phlebitis [Recovering/Resolving]

NARRATIVE: CASE EVENT DATE: 20221006
